FAERS Safety Report 9028028 (Version 1)
Quarter: 2013Q1

REPORT INFORMATION
  Report Type: Spontaneous
  Country: US (occurrence: None)
  Receive Date: 20130114
  Receipt Date: 20130114
  Transmission Date: 20140127
  Serious: Yes (Life-Threatening, Hospitalization)
  Sender: FDA-Public Use
  Company Number: None

PATIENT
  Age: 34 Year
  Sex: Female
  Weight: 71.4 kg

DRUGS (3)
  1. CARBAMAZEPINE [Suspect]
     Indication: BIPOLAR DISORDER
     Route: 048
     Dates: start: 20120503, end: 20120529
  2. CARBAMAZEPINE [Suspect]
     Indication: MANIA
     Route: 048
     Dates: start: 20120503, end: 20120529
  3. CARBAMAZEPINE [Suspect]
     Route: 048
     Dates: start: 20120503, end: 20120529

REACTIONS (1)
  - Stevens-Johnson syndrome [None]
